FAERS Safety Report 23151901 (Version 3)
Quarter: 2024Q3

REPORT INFORMATION
  Report Type: Report from Study
  Country: CO (occurrence: CO)
  Receive Date: 20231107
  Receipt Date: 20240719
  Transmission Date: 20241017
  Serious: Yes (Hospitalization)
  Sender: ABBVIE
  Company Number: CO-ABBVIE-5484173

PATIENT
  Age: 72 Year
  Sex: Female
  Weight: 65 kg

DRUGS (2)
  1. VENCLEXTA [Suspect]
     Active Substance: VENETOCLAX
     Indication: Chronic lymphocytic leukaemia
     Dosage: 400 MILLIGRAM, FORM STRENGTH: 100 MILLIGRAM
     Route: 048
     Dates: start: 20230621, end: 20231031
  2. VENCLEXTA [Suspect]
     Active Substance: VENETOCLAX
     Indication: Chronic lymphocytic leukaemia
     Dosage: FORM STRENGTH: 100 MILLIGRAM
     Route: 048
     Dates: start: 20231112, end: 20240524

REACTIONS (7)
  - Tachycardia [Recovering/Resolving]
  - Peripheral swelling [Recovered/Resolved]
  - Hypertension [Unknown]
  - Weight increased [Unknown]
  - Blood uric acid abnormal [Unknown]
  - Contusion [Recovered/Resolved]
  - Cardiac disorder [Recovering/Resolving]

NARRATIVE: CASE EVENT DATE: 20231031
